FAERS Safety Report 19135170 (Version 2)
Quarter: 2021Q2

REPORT INFORMATION
  Report Type: Spontaneous
  Country: GB (occurrence: GB)
  Receive Date: 20210414
  Receipt Date: 20210416
  Transmission Date: 20210717
  Serious: Yes (Disabling, Other)
  Sender: FDA-Public Use
  Company Number: GB-ORGANON-O2104GBR000882

PATIENT
  Age: 29 Year
  Sex: Female
  Weight: 70.3 kg

DRUGS (2)
  1. NASONEX [Suspect]
     Active Substance: MOMETASONE FUROATE
     Dosage: 2 DOSAGE FORM (REDUCED TO ONE SPRAY IN EACH NOSTRIL)
     Route: 045
     Dates: start: 2021, end: 2021
  2. NASONEX [Suspect]
     Active Substance: MOMETASONE FUROATE
     Indication: NASAL CONGESTION
     Dosage: 4 DOSAGE FORM (2 SPRAYS IN EACH NOSTRIL TWICE DAILY)
     Route: 045
     Dates: start: 20210118, end: 2021

REACTIONS (3)
  - Headache [Recovered/Resolved]
  - Eye pain [Recovered/Resolved]
  - Nausea [Recovered/Resolved]

NARRATIVE: CASE EVENT DATE: 20210118
